FAERS Safety Report 10629187 (Version 1)
Quarter: 2014Q4

REPORT INFORMATION
  Report Type: Spontaneous
  Country: US (occurrence: US)
  Receive Date: 20141205
  Receipt Date: 20141205
  Transmission Date: 20150529
  Serious: No
  Sender: FDA-Public Use
  Company Number: US-BRISTOL-MYERS SQUIBB COMPANY-21366794

PATIENT
  Age: 73 Year
  Sex: Male
  Weight: 70.29 kg

DRUGS (2)
  1. BYETTA [Suspect]
     Active Substance: EXENATIDE
     Indication: TYPE 2 DIABETES MELLITUS
     Dosage: 5 YEARS AGO
     Dates: end: 2012
  2. BYETTA [Suspect]
     Active Substance: EXENATIDE
     Indication: LATENT AUTOIMMUNE DIABETES IN ADULTS
     Dosage: 5 YEARS AGO
     Dates: end: 2012

REACTIONS (1)
  - Diarrhoea [Unknown]
